FAERS Safety Report 4899525-4 (Version None)
Quarter: 2006Q1

REPORT INFORMATION
  Report Type: 
  Country: None (occurrence: None)
  Receive Date: 20060118
  Receipt Date: 20050726
  Transmission Date: 20060701
  Serious: No
  Sender: FDA-Public Use
  Company Number: 2005001442

PATIENT
  Age: 62 Year
  Sex: Female
  Weight: 51.7101 kg

DRUGS (4)
  1. TARCEVA [Suspect]
     Indication: LUNG NEOPLASM MALIGNANT
     Dosage: 150 MG (QD), ORAL
     Route: 048
  2. LORTAB [Concomitant]
  3. CLONIDINE [Concomitant]
  4. OXYGEN [Concomitant]

REACTIONS (9)
  - ANOREXIA [None]
  - DRY EYE [None]
  - DRY SKIN [None]
  - EPISTAXIS [None]
  - HYPERAESTHESIA [None]
  - ORAL PAIN [None]
  - RASH [None]
  - SKIN FISSURES [None]
  - SKIN HAEMORRHAGE [None]
